FAERS Safety Report 14661744 (Version 2)
Quarter: 2018Q2

REPORT INFORMATION
  Report Type: Spontaneous
  Country: CA (occurrence: CA)
  Receive Date: 20180320
  Receipt Date: 20180510
  Transmission Date: 20180711
  Serious: Yes (Death, Congenital Anomaly)
  Sender: FDA-Public Use
  Company Number: CA-ALLERGAN-1814976US

PATIENT

DRUGS (1)
  1. SALOFALK 500 MG SUPPOSITORIES [Suspect]
     Active Substance: MESALAMINE
     Indication: MATERNAL EXPOSURE DURING PREGNANCY
     Dosage: UNK
     Route: 064

REACTIONS (1)
  - Chondrodystrophy [Fatal]
